FAERS Safety Report 23740184 (Version 4)
Quarter: 2024Q3

REPORT INFORMATION
  Report Type: Spontaneous
  Country: US (occurrence: US)
  Receive Date: 20240414
  Receipt Date: 20240827
  Transmission Date: 20241017
  Serious: Yes (Other)
  Sender: BRISTOL MYERS SQUIBB
  Company Number: US-BRISTOL-MYERS SQUIBB COMPANY-2024-056449

PATIENT
  Age: 72 Year
  Sex: Female
  Weight: 92.08 kg

DRUGS (1)
  1. POMALYST [Suspect]
     Active Substance: POMALIDOMIDE
     Indication: Plasma cell myeloma
     Dosage: 21D ON 7D OFF/3WKSON,1WKOFF/DAILY FOR 21 DAYS
     Route: 048
     Dates: start: 20230601

REACTIONS (6)
  - Blood disorder [Recovered/Resolved]
  - Joint swelling [Unknown]
  - Cataract [Unknown]
  - Endometrial cancer [Recovered/Resolved]
  - Hypertension [Recovered/Resolved]
  - Stress [Unknown]
